FAERS Safety Report 12861667 (Version 7)
Quarter: 2017Q4

REPORT INFORMATION
  Report Type: Spontaneous
  Country: US (occurrence: US)
  Receive Date: 20161019
  Receipt Date: 20171004
  Transmission Date: 20180320
  Serious: No
  Sender: FDA-Public Use
  Company Number: US-PFIZER INC-2016486966

PATIENT
  Age: 51 Year
  Sex: Female

DRUGS (1)
  1. XELJANZ XR [Suspect]
     Active Substance: TOFACITINIB CITRATE
     Dosage: 11 MG, DAILY
     Dates: start: 201611

REACTIONS (14)
  - Tendonitis [Recovering/Resolving]
  - Hypoaesthesia [Unknown]
  - Swelling [Recovering/Resolving]
  - Paraesthesia [Unknown]
  - Drug ineffective [Unknown]
  - Tenderness [Unknown]
  - Nodule [Unknown]
  - Localised infection [Unknown]
  - Epicondylitis [Unknown]
  - Dry eye [Unknown]
  - Dyspepsia [Unknown]
  - Arthralgia [Recovering/Resolving]
  - Musculoskeletal stiffness [Recovering/Resolving]
  - Carpal tunnel syndrome [Unknown]
